FAERS Safety Report 8428659-2 (Version None)
Quarter: 2012Q2

REPORT INFORMATION
  Report Type: 
  Country: None (occurrence: None)
  Receive Date: 20120323
  Receipt Date: 20111110
  Transmission Date: 20120825
  Serious: Yes (Other)
  Sender: FDA-Public Use
  Company Number: 163-21880-11071140

PATIENT
  Age: 75 Year
  Sex: Male

DRUGS (3)
  1. REVLIMID [Suspect]
     Indication: MULTIPLE MYELOMA
     Dosage: 25 MG, FOR 21 DAYS; TWO WEEKS OFF, PO
     Route: 048
     Dates: start: 20110408
  2. OXYCODONE HCL [Concomitant]
  3. FENTANYL [Concomitant]

REACTIONS (1)
  - WEIGHT DECREASED [None]
